FAERS Safety Report 15378435 (Version 1)
Quarter: 2018Q3

REPORT INFORMATION
  Report Type: Spontaneous
  Country: US (occurrence: US)
  Receive Date: 20180906
  Receipt Date: 20180906
  Transmission Date: 20181010
  Serious: Yes (Other)
  Sender: FDA-Public Use
  Company Number: None

PATIENT
  Age: 70 Year
  Sex: Male
  Weight: 125.55 kg

DRUGS (16)
  1. ENALAPRIL?HCTZ [Concomitant]
  2. ZEACANTHIN [Concomitant]
  3. TERAZOSIN [Concomitant]
     Active Substance: TERAZOSIN\TERAZOSIN HYDROCHLORIDE
  4. PROBIOTIC [Concomitant]
     Active Substance: PROBIOTICS NOS
  5. SANDOSTATIN [Concomitant]
     Active Substance: OCTREOTIDE ACETATE
  6. FAMOTIDINE. [Concomitant]
     Active Substance: FAMOTIDINE
  7. FERROUS SULFATE. [Concomitant]
     Active Substance: FERROUS SULFATE
  8. XGEVA [Concomitant]
     Active Substance: DENOSUMAB
  9. ZYTIGA [Suspect]
     Active Substance: ABIRATERONE ACETATE
     Indication: PROSTATE CANCER
     Route: 048
     Dates: start: 20180202, end: 20180906
  10. DIGOXIN. [Concomitant]
     Active Substance: DIGOXIN
  11. WARFARIN [Concomitant]
     Active Substance: WARFARIN
  12. LUTEIN [Concomitant]
     Active Substance: LUTEIN
  13. DILTIAZEM. [Concomitant]
     Active Substance: DILTIAZEM
  14. CALCIUM + D3 [Concomitant]
     Active Substance: CALCIUM\CHOLECALCIFEROL
  15. LUPRON [Concomitant]
     Active Substance: LEUPROLIDE ACETATE
  16. AMIODARONE [Concomitant]
     Active Substance: AMIODARONE

REACTIONS (1)
  - Disease progression [None]

NARRATIVE: CASE EVENT DATE: 20180906
